FAERS Safety Report 23327903 (Version 1)
Quarter: 2023Q4

REPORT INFORMATION
  Report Type: Report from Study
  Country: US (occurrence: None)
  Receive Date: 20231221
  Receipt Date: 20231221
  Transmission Date: 20240110
  Serious: Yes (Other)
  Sender: FDA-Public Use
  Company Number: 2023A288164

PATIENT
  Age: 3346 Week
  Sex: Female

DRUGS (2)
  1. LYNPARZA [Suspect]
     Active Substance: OLAPARIB
     Indication: Uterine cancer
     Route: 048
     Dates: start: 20231206, end: 20231210
  2. LYNPARZA [Suspect]
     Active Substance: OLAPARIB
     Indication: Uterine cancer
     Dosage: UNKNOWN
     Route: 048

REACTIONS (5)
  - Nausea [Unknown]
  - Feeding disorder [Unknown]
  - Pyrexia [Unknown]
  - Abdominal distension [Unknown]
  - Constipation [Unknown]
